FAERS Safety Report 6700492-9 (Version None)
Quarter: 2010Q2

REPORT INFORMATION
  Report Type: 
  Country: None (occurrence: None)
  Receive Date: 20100428
  Receipt Date: 20100423
  Transmission Date: 20101027
  Serious: Yes (Hospitalization)
  Sender: FDA-Public Use
  Company Number: A0775972A

PATIENT
  Sex: Male

DRUGS (1)
  1. ROSIGLITAZONE [Suspect]
     Indication: INSULIN RESISTANCE
     Route: 048

REACTIONS (1)
  - CARDIAC DISORDER [None]
